FAERS Safety Report 20584264 (Version 2)
Quarter: 2022Q1

REPORT INFORMATION
  Report Type: Report from Study
  Country: FR (occurrence: FR)
  Receive Date: 20220311
  Receipt Date: 20220315
  Transmission Date: 20220423
  Serious: Yes (Life-Threatening, Other)
  Sender: FDA-Public Use
  Company Number: FR-GILEAD-2022-0573119

PATIENT
  Sex: Male
  Weight: 85 kg

DRUGS (3)
  1. AXICABTAGENE CILOLEUCEL [Suspect]
     Active Substance: AXICABTAGENE CILOLEUCEL
     Indication: B-cell lymphoma
     Dosage: UNK
     Route: 042
     Dates: start: 20220301, end: 20220301
  2. FLUDARABINE [Concomitant]
     Active Substance: FLUDARABINE PHOSPHATE
     Indication: Bone marrow conditioning regimen
     Dosage: 58.75 MG
     Dates: start: 20220224, end: 20220226
  3. CYCLOPHOSPHAMIDE [Concomitant]
     Active Substance: CYCLOPHOSPHAMIDE
     Indication: Bone marrow conditioning regimen
     Dosage: 990 MG
     Route: 042
     Dates: start: 20220224, end: 20220226

REACTIONS (2)
  - Spinal cord oedema [Recovered/Resolved]
  - Parotitis [Recovered/Resolved]

NARRATIVE: CASE EVENT DATE: 20220306
